FAERS Safety Report 22203938 (Version 1)
Quarter: 2023Q2

REPORT INFORMATION
  Report Type: Spontaneous
  Country: CN (occurrence: CN)
  Receive Date: 20230412
  Receipt Date: 20230412
  Transmission Date: 20230721
  Serious: Yes (Hospitalization)
  Sender: FDA-Public Use
  Company Number: CN-PFIZER INC-PV202300064302

PATIENT
  Age: 16 Year
  Sex: Female
  Weight: 50 kg

DRUGS (2)
  1. AZITHROMYCIN [Suspect]
     Active Substance: AZITHROMYCIN
     Indication: Infection
     Dosage: 500 MG, 1X/DAY
     Route: 048
     Dates: start: 20230312, end: 20230312
  2. OSELTAMIVIR PHOSPHATE [Suspect]
     Active Substance: OSELTAMIVIR PHOSPHATE
     Indication: Infection
     Dosage: 75 MG, 2X/DAY
     Route: 048
     Dates: start: 20230312, end: 20230312

REACTIONS (1)
  - Tremor [Recovering/Resolving]

NARRATIVE: CASE EVENT DATE: 20230312
